FAERS Safety Report 14187565 (Version 3)
Quarter: 2018Q2

REPORT INFORMATION
  Report Type: Report from Study
  Country: None (occurrence: US)
  Receive Date: 20171114
  Receipt Date: 20180404
  Transmission Date: 20180711
  Serious: Yes (Other)
  Sender: FDA-Public Use
  Company Number: US-ABBVIE-17K-163-2146640-00

PATIENT
  Age: 70 Year
  Sex: Female

DRUGS (1)
  1. HUMIRA [Suspect]
     Active Substance: ADALIMUMAB
     Indication: PSORIATIC ARTHROPATHY
     Route: 058
     Dates: start: 201606

REACTIONS (6)
  - Muscle injury [Unknown]
  - Pain in extremity [Unknown]
  - Spinal operation [Unknown]
  - Spinal operation [Unknown]
  - Bone loss [Unknown]
  - Nerve injury [Unknown]

NARRATIVE: CASE EVENT DATE: 201709
